FAERS Safety Report 8822174 (Version 2)
Quarter: 2012Q4

REPORT INFORMATION
  Report Type: 
  Country: DE (occurrence: DE)
  Receive Date: 20121003
  Receipt Date: 20121219
  Transmission Date: 20130627
  Serious: Yes (Other)
  Sender: FDA-Public Use
  Company Number: DE-UCBSA-064888

PATIENT
  Age: 54 Year
  Sex: Female

DRUGS (4)
  1. VIMPAT [Suspect]
     Indication: PARTIAL SEIZURES
     Dosage: SINGLE DOSE 150, DAILY DOSE 250 AS REPORTED REDUCED IN JULY
     Route: 048
     Dates: start: 201009
  2. RISPERIDON [Suspect]
     Indication: AGGRESSION
     Dosage: DAILY DOSE 0.25
     Route: 048
     Dates: start: 2009
  3. KEPPRA [Concomitant]
     Indication: PARTIAL SEIZURES
     Route: 048
     Dates: start: 2009
  4. AZILECT [Concomitant]
     Indication: PARKINSONISM
     Dosage: SINGLE DOSE: 1 DAILY DOSE
     Route: 048
     Dates: start: 201102

REACTIONS (2)
  - Oedema peripheral [Not Recovered/Not Resolved]
  - Face oedema [Not Recovered/Not Resolved]
